FAERS Safety Report 8489228-1 (Version None)
Quarter: 2012Q2

REPORT INFORMATION
  Report Type: 
  Country: None (occurrence: None)
  Receive Date: 20120628
  Receipt Date: 20120628
  Transmission Date: 20120825
  Serious: Yes (Hospitalization)
  Sender: FDA-Public Use
  Company Number: None

PATIENT
  Age: 65 Year
  Sex: Male
  Weight: 105.7 kg

DRUGS (2)
  1. PRAVASTATIN [Suspect]
     Indication: HYPERLIPIDAEMIA
     Dosage: 20 MG AT BEDTIME PO
     Route: 048
     Dates: start: 20071108, end: 20120312
  2. DARUNAVIR HYDRATE [Suspect]
     Indication: INFECTION
     Dosage: 600 MG BID PO
     Route: 048
     Dates: start: 20060725

REACTIONS (6)
  - ACUTE PRERENAL FAILURE [None]
  - DRUG INTERACTION [None]
  - FLUID INTAKE REDUCED [None]
  - FLANK PAIN [None]
  - RENAL FAILURE ACUTE [None]
  - RHABDOMYOLYSIS [None]
